FAERS Safety Report 8361937-4 (Version None)
Quarter: 2012Q2

REPORT INFORMATION
  Report Type: 
  Country: None (occurrence: None)
  Receive Date: 20120515
  Receipt Date: 20100813
  Transmission Date: 20120825
  Serious: No
  Sender: FDA-Public Use
  Company Number: US-TEVA-2010004333

PATIENT
  Sex: Male
  Weight: 83.99 kg

DRUGS (5)
  1. NUVIGIL [Suspect]
     Indication: SLEEP APNOEA SYNDROME
     Dosage: 250 MILLIGRAM;
     Route: 048
     Dates: start: 20100813
  2. NAPROXEN (ALEVE) [Concomitant]
     Indication: PAIN
     Route: 048
  3. ASPIRIN [Concomitant]
     Dosage: 81 MILLIGRAM;
  4. XANAX [Concomitant]
     Indication: PANIC ATTACK
     Route: 048
     Dates: start: 20050101
  5. PROZAC [Concomitant]
     Indication: DEPRESSION
     Dosage: 40 MILLIGRAM;
     Route: 048
     Dates: start: 20000101

REACTIONS (2)
  - FEELING JITTERY [None]
  - ABDOMINAL DISCOMFORT [None]
